FAERS Safety Report 8274986-1 (Version None)
Quarter: 2012Q2

REPORT INFORMATION
  Report Type: 
  Country: None (occurrence: None)
  Receive Date: 20120411
  Receipt Date: 20120329
  Transmission Date: 20120825
  Serious: Yes (Hospitalization)
  Sender: FDA-Public Use
  Company Number: IL-ROCHE-1054109

PATIENT
  Age: 67 Year
  Sex: Female

DRUGS (8)
  1. ACTEMRA [Suspect]
     Indication: RHEUMATOID ARTHRITIS
     Dates: start: 20050101
  2. LOSARTAN POTASSIUM [Concomitant]
  3. NIFEDIPINE [Concomitant]
  4. METHOTREXATE [Concomitant]
  5. SIMVASTATIN [Concomitant]
  6. OMEPRADEX [Concomitant]
  7. ASPIRIN [Concomitant]
  8. FOLIC ACID [Concomitant]

REACTIONS (1)
  - ACUTE MYOCARDIAL INFARCTION [None]
